FAERS Safety Report 5073335-X (Version None)
Quarter: 2006Q3

REPORT INFORMATION
  Report Type: 
  Country: None (occurrence: None)
  Receive Date: 20060808
  Receipt Date: 20060726
  Transmission Date: 20061208
  Serious: Yes (Death, Hospitalization)
  Sender: FDA-Public Use
  Company Number: GB-JNJFOC-20060706143

PATIENT
  Age: 91 Year
  Sex: Female

DRUGS (4)
  1. IBUPROFEN [Suspect]
     Indication: OSTEOARTHRITIS
  2. DICLOFENAC SODIUM [Suspect]
     Indication: OSTEOARTHRITIS
  3. SPIRONOLACTONE [Suspect]
     Indication: HYPERTENSION
  4. BUMETANIDE [Suspect]
     Indication: HYPERTENSION

REACTIONS (2)
  - DRUG TOXICITY [None]
  - RENAL FAILURE [None]
